FAERS Safety Report 8720070 (Version 2)
Quarter: 2012Q4

REPORT INFORMATION
  Report Type: 
  Country: US (occurrence: US)
  Receive Date: 20120813
  Receipt Date: 20120914
  Transmission Date: 20130627
  Serious: Yes (Hospitalization, Other)
  Sender: FDA-Public Use
  Company Number: US-ASTELLAS-2012US006697

PATIENT
  Age: 24 None
  Sex: Female
  Weight: 47 kg

DRUGS (15)
  1. PROGRAF [Suspect]
     Indication: RENAL TRANSPLANT
     Dosage: 3 mg, bid
     Route: 048
  2. PROGRAF [Suspect]
     Dosage: 1 mg, tid
     Route: 048
  3. PROGRAF [Suspect]
     Dosage: 6 mg, bid
     Route: 048
     Dates: start: 20050207
  4. AMLODIPINE [Concomitant]
     Indication: PRODUCT USED FOR UNKNOWN INDICATION
     Dosage: 5 mg, UID/QD
     Route: 048
  5. PREDNISONE [Concomitant]
     Indication: PRODUCT USED FOR UNKNOWN INDICATION
     Dosage: 5 mg, UID/QD
     Route: 048
  6. MYFORTIC [Concomitant]
     Indication: PRODUCT USED FOR UNKNOWN INDICATION
     Dosage: 380 mg, UID/QD
     Route: 048
  7. NITROFURANTOIN MONOHYDRATE/MACROCRYSTALS [Concomitant]
     Indication: PRODUCT USED FOR UNKNOWN INDICATION
     Dosage: 100 mg, bid
     Route: 048
  8. NITROFURANTOIN [Concomitant]
     Indication: PRODUCT USED FOR UNKNOWN INDICATION
     Dosage: 50 mg, UID/QD
     Route: 048
  9. LIPITOR [Concomitant]
     Indication: PRODUCT USED FOR UNKNOWN INDICATION
     Dosage: 10 mg, UID/QD
     Route: 048
  10. RENAGEL                            /01459901/ [Concomitant]
     Indication: PRODUCT USED FOR UNKNOWN INDICATION
     Dosage: UNK
     Route: 065
  11. NEPHRO-VITE                        /01801401/ [Concomitant]
     Indication: PRODUCT USED FOR UNKNOWN INDICATION
     Dosage: UNK
     Route: 065
  12. EPOGEN [Concomitant]
     Indication: PRODUCT USED FOR UNKNOWN INDICATION
     Dosage: UNK
     Route: 065
  13. ZANTAC [Concomitant]
     Indication: PRODUCT USED FOR UNKNOWN INDICATION
     Dosage: UNK
     Route: 065
  14. ROCALTROL [Concomitant]
     Indication: PRODUCT USED FOR UNKNOWN INDICATION
     Dosage: UNK
     Route: 065
  15. THYMOGLOBULIN [Concomitant]
     Indication: PRODUCT USED FOR UNKNOWN INDICATION
     Dosage: UNK
     Route: 065
     Dates: start: 200502, end: 200502

REACTIONS (19)
  - Drug ineffective [Unknown]
  - Intestinal obstruction [Unknown]
  - Hyperparathyroidism secondary [Unknown]
  - Hepatic calcification [Unknown]
  - Splenic calcification [Unknown]
  - Peritonitis sclerosing [Unknown]
  - Cholelithiasis [Unknown]
  - Hydronephrosis [Unknown]
  - Impaired gastric emptying [Unknown]
  - Kidney transplant rejection [Unknown]
  - Kidney transplant rejection [Unknown]
  - Hypertension [Unknown]
  - Escherichia urinary tract infection [Recovered/Resolved]
  - Bacteraemia [Recovered/Resolved]
  - Haemorrhoids [Unknown]
  - Rectal fissure [Unknown]
  - Osteopenia [Unknown]
  - Hyperlipidaemia [Unknown]
  - Gastrooesophageal reflux disease [Unknown]
